FAERS Safety Report 4936723-5 (Version None)
Quarter: 2006Q1

REPORT INFORMATION
  Report Type: 
  Country: None (occurrence: None)
  Receive Date: 20060302
  Receipt Date: 20060221
  Transmission Date: 20060701
  Serious: Yes (Life-Threatening)
  Sender: FDA-Public Use
  Company Number: 430001M06FRA

PATIENT
  Age: 59 Year
  Sex: Male

DRUGS (9)
  1. NOVANTRONE [Suspect]
     Indication: NON-HODGKIN'S LYMPHOMA RECURRENT
     Dosage: 12 MG, 3 IN 1 DAYS, INTRAVENOUS
     Route: 042
     Dates: start: 20001016, end: 20001201
  2. NOVANTRONE [Suspect]
     Indication: NON-HODGKIN'S LYMPHOMA RECURRENT
     Dosage: 12 MG, 3 IN 1 DAYS, INTRAVENOUS
     Route: 042
     Dates: start: 20010101, end: 20010314
  3. DOXORUBICIN HYROCHLORIDE [Suspect]
     Indication: NON-HODGKIN'S LYMPHOMA
     Dosage: 85 MG, 4 IN 1 DAYS, INTRAVENOUS
     Route: 042
     Dates: start: 19980515, end: 19980515
  4. CYCLOPHOSPHAMIDE [Suspect]
     Indication: NON-HODGKIN'S LYMPHOMA
     Dosage: SEE IMAGE, INTRAVENOUS
     Route: 042
     Dates: start: 19980515, end: 19980515
  5. FLUDARABINE PHOSPHATE [Suspect]
     Indication: NON-HODGKIN'S LYMPHOMA RECURRENT
     Dosage: SEE IMAGE, INTRAVENOUS
     Route: 042
     Dates: start: 20001016, end: 20001201
  6. FLUDARABINE PHOSPHATE [Suspect]
     Indication: NON-HODGKIN'S LYMPHOMA RECURRENT
     Dosage: SEE IMAGE, INTRAVENOUS
     Route: 042
     Dates: start: 20010101, end: 20010314
  7. RITUXIMAB [Suspect]
     Indication: NON-HODGKIN'S LYMPHOMA RECURRENT
     Dosage: 700 MG, 3 IN 1 DAYS, INTRAVENOUS
     Route: 042
     Dates: start: 20001016, end: 20001201
  8. VINCRISTINE SULFATE [Suspect]
     Indication: NON-HODGKIN'S LYMPHOMA
     Dosage: 1 MG, 4 IN 1 DAYS, INTRAVENOUS
     Route: 042
     Dates: start: 19980515, end: 19980515
  9. ETOPOSIDE [Suspect]
     Indication: NON-HODGKIN'S LYMPHOMA
     Dosage: 450 MG/M2, 1 IN 1 CYCLE, INTRAVENOUS
     Route: 042
     Dates: start: 19980815, end: 19980815

REACTIONS (2)
  - GASTRIC CANCER STAGE IV [None]
  - METASTASES TO PERITONEUM [None]
